FAERS Safety Report 10331040 (Version 1)
Quarter: 2014Q3

REPORT INFORMATION
  Report Type: Spontaneous
  Country: US (occurrence: US)
  Receive Date: 20140722
  Receipt Date: 20140722
  Transmission Date: 20150326
  Serious: Yes (Other)
  Sender: FDA-Public Use
  Company Number: US-ASTELLAS-2014US008565

PATIENT
  Sex: Female

DRUGS (2)
  1. VESICARE [Suspect]
     Active Substance: SOLIFENACIN SUCCINATE
     Indication: INCONTINENCE
     Route: 065
     Dates: start: 20140622
  2. ANTIHYPERTENSIVES [Concomitant]
     Active Substance: UNSPECIFIED INGREDIENT
     Indication: HYPERTENSION
     Dosage: UNK UNK, UNKNOWN FREQ.
     Route: 065

REACTIONS (10)
  - Gout [Unknown]
  - Flatulence [Unknown]
  - Hyperhidrosis [Unknown]
  - Skin odour abnormal [Unknown]
  - Vision blurred [Unknown]
  - Hot flush [Unknown]
  - Constipation [Unknown]
  - Gastric bypass [Unknown]
  - Pain [Unknown]
  - Drug ineffective [Unknown]
